FAERS Safety Report 11754142 (Version 1)
Quarter: 2015Q4

REPORT INFORMATION
  Report Type: Spontaneous
  Country: GB (occurrence: GB)
  Receive Date: 20151119
  Receipt Date: 20151119
  Transmission Date: 20160304
  Serious: Yes (Death, Life-Threatening, Hospitalization, Disabling, Other)
  Sender: FDA-Public Use
  Company Number: PHFR2015GB008768

PATIENT
  Age: 71 Year
  Sex: Female

DRUGS (2)
  1. ARZERRA [Suspect]
     Active Substance: OFATUMUMAB
     Indication: CHRONIC LYMPHOCYTIC LEUKAEMIA
     Dosage: 1000 MG, UNK
     Route: 042
     Dates: start: 20140226, end: 20150106
  2. CHLORAMBUCIL [Concomitant]
     Active Substance: CHLORAMBUCIL
     Indication: CHRONIC LYMPHOCYTIC LEUKAEMIA
     Route: 048
     Dates: start: 20140226, end: 20150106

REACTIONS (3)
  - Infection reactivation [Fatal]
  - White matter lesion [Fatal]
  - JC virus infection [Fatal]

NARRATIVE: CASE EVENT DATE: 20150819
